FAERS Safety Report 5714712-0 (Version None)
Quarter: 2008Q2

REPORT INFORMATION
  Report Type: 
  Country: None (occurrence: None)
  Receive Date: 20080423
  Receipt Date: 20080416
  Transmission Date: 20081010
  Serious: Yes (Hospitalization, Other)
  Sender: FDA-Public Use
  Company Number: PHHY2008BR04922

PATIENT
  Age: 80 Year
  Sex: Female

DRUGS (6)
  1. EXELON [Suspect]
     Indication: DEMENTIA ALZHEIMER'S TYPE
     Dosage: 3 MG, BID
     Route: 048
     Dates: start: 20070201
  2. RIVOTRIL [Concomitant]
     Dosage: 2 ML, QD AT NIGHT
  3. RISPERIDONE [Concomitant]
     Dosage: 1 MG, UNK
  4. RIVASTIGMINE TARTRATE [Suspect]
  5. SERTRALINE [Concomitant]
  6. BROMAZEPAM [Concomitant]

REACTIONS (9)
  - ABASIA [None]
  - AGNOSIA [None]
  - BEDRIDDEN [None]
  - GASTROINTESTINAL TUBE INSERTION [None]
  - LISTLESS [None]
  - MALAISE [None]
  - NASOPHARYNGITIS [None]
  - SEDATION [None]
  - SPEECH DISORDER [None]
